FAERS Safety Report 8349628-7 (Version None)
Quarter: 2012Q2

REPORT INFORMATION
  Report Type: 
  Country: None (occurrence: None)
  Receive Date: 20120510
  Receipt Date: 20120502
  Transmission Date: 20120825
  Serious: Yes (Hospitalization)
  Sender: FDA-Public Use
  Company Number: FR-PFIZER INC-2012107250

PATIENT
  Age: 39 Year
  Sex: Female

DRUGS (7)
  1. TACROLIMUS [Suspect]
     Dosage: 5 MG, 1X/DAY
     Route: 048
     Dates: start: 20100101
  2. AZATHIOPRINE [Suspect]
     Dosage: 50 MG, 2X/DAY
     Route: 048
     Dates: start: 20100101
  3. ISRADIPINE [Suspect]
     Dosage: 5 MG, 1X/DAY
     Route: 048
  4. PRAVASTATIN SODIUM [Suspect]
     Dosage: 10 MG, 1X/DAY
     Route: 048
  5. XALATAN [Suspect]
     Dosage: UNK
     Route: 047
  6. AZOPT [Suspect]
     Dosage: UNK
     Route: 031
  7. FUROSEMIDE [Suspect]
     Dosage: 40 MG, 1X/DAY
     Route: 048

REACTIONS (1)
  - THROMBOCYTOPENIA [None]
